FAERS Safety Report 8105564-2 (Version None)
Quarter: 2012Q1

REPORT INFORMATION
  Report Type: 
  Country: None (occurrence: None)
  Receive Date: 20120201
  Receipt Date: 20120127
  Transmission Date: 20120608
  Serious: Yes (Other)
  Sender: FDA-Public Use
  Company Number: US-ROXANE LABORATORIES, INC.-2012-RO-00568RO

PATIENT
  Age: 58 Year
  Sex: Male

DRUGS (9)
  1. PREDNISONE TAB [Suspect]
  2. MOMETASONE FUROATE [Suspect]
     Dosage: 220 MCG
     Route: 055
  3. ALBUTEROL SULFATE AND IPRATROPIUM BROMIDE [Suspect]
     Route: 055
  4. TERAZOSIN HCL [Suspect]
     Dosage: 2 MG
     Route: 048
  5. GABAPENTIN [Suspect]
     Dosage: 900 MG
  6. MONTELUKAST [Suspect]
     Dosage: 10 MG
     Route: 048
  7. FORMOTEROL FUMARATE [Suspect]
     Dosage: 24 MCG
     Route: 055
  8. OMEPRAZOLE [Suspect]
     Dosage: 20 MG
     Route: 048
  9. CYANOCOBALAMIN [Suspect]
     Dosage: 1000 MCG
     Route: 048

REACTIONS (2)
  - PANIC ATTACK [None]
  - TACHYCARDIA [None]
